FAERS Safety Report 21776713 (Version 2)
Quarter: 2022Q4

REPORT INFORMATION
  Report Type: Spontaneous
  Country: US (occurrence: US)
  Receive Date: 20221226
  Receipt Date: 20221226
  Transmission Date: 20230113
  Serious: No
  Sender: FDA-Public Use
  Company Number: US-COLLEGIUM PHARMACEUTICAL, INC.-20220900254

PATIENT

DRUGS (1)
  1. NUCYNTA [Suspect]
     Active Substance: TAPENTADOL HYDROCHLORIDE
     Indication: Complex regional pain syndrome
     Dosage: ONE TABLET EVERY 8 HOURS
     Route: 048
     Dates: start: 202201

REACTIONS (3)
  - Drug ineffective [Unknown]
  - Drug screen negative [Unknown]
  - Product administration error [Unknown]
